FAERS Safety Report 12931816 (Version 3)
Quarter: 2018Q2

REPORT INFORMATION
  Report Type: Report from Study
  Country: DE (occurrence: DE)
  Receive Date: 20161111
  Receipt Date: 20180528
  Transmission Date: 20180711
  Serious: Yes (Hospitalization)
  Sender: FDA-Public Use
  Company Number: DE-ROCHE-1810210

PATIENT
  Sex: Female
  Weight: 53 kg

DRUGS (10)
  1. BEVACIZUMAB. [Suspect]
     Active Substance: BEVACIZUMAB
     Indication: BREAST CANCER
     Dosage: DATE OF LAST DOSE PRIOR TO PARAESTHESIA: 07/JUL/2016
     Route: 042
     Dates: start: 20160414, end: 20160414
  2. DEKRISTOL [Concomitant]
     Active Substance: CHOLECALCIFEROL
     Route: 048
  3. BEVACIZUMAB. [Suspect]
     Active Substance: BEVACIZUMAB
     Dosage: LAST DOSE OF PRIOR TO ANEMIA AND MIGRAIN ATTACKS
     Route: 042
     Dates: start: 20160525
  4. PACLITAXEL. [Concomitant]
     Active Substance: PACLITAXEL
     Indication: BREAST CANCER
     Dosage: 125-127 MG
     Route: 042
     Dates: start: 20160407
  5. BEVACIZUMAB. [Suspect]
     Active Substance: BEVACIZUMAB
     Route: 042
     Dates: start: 20160707
  6. BEVACIZUMAB. [Suspect]
     Active Substance: BEVACIZUMAB
     Route: 042
     Dates: start: 20160905
  7. SUMATRIPTAN. [Concomitant]
     Active Substance: SUMATRIPTAN
     Route: 048
     Dates: start: 20160601
  8. PANTOZOL [Concomitant]
     Active Substance: PANTOPRAZOLE SODIUM
     Route: 048
     Dates: start: 20160101, end: 20161118
  9. RISEDRONAT [Concomitant]
     Active Substance: RISEDRONATE SODIUM
     Route: 048
  10. BEVACIZUMAB. [Suspect]
     Active Substance: BEVACIZUMAB
     Dosage: LAST DOSE PRIOR TO BACK PAIN
     Route: 042
     Dates: start: 20160504

REACTIONS (4)
  - Anaemia [Recovered/Resolved]
  - Migraine [Recovered/Resolved]
  - Paraesthesia [Unknown]
  - Back pain [Recovered/Resolved]

NARRATIVE: CASE EVENT DATE: 20160519
